FAERS Safety Report 11825680 (Version 3)
Quarter: 2016Q4

REPORT INFORMATION
  Report Type: Spontaneous
  Country: US (occurrence: US)
  Receive Date: 20151211
  Receipt Date: 20161017
  Transmission Date: 20170206
  Serious: No
  Sender: FDA-Public Use
  Company Number: US-JNJFOC-20150817075

PATIENT
  Sex: Male

DRUGS (8)
  1. OXYBUTYNIN [Concomitant]
     Active Substance: OXYBUTYNIN
  2. NORCO [Concomitant]
     Active Substance: ACETAMINOPHEN\HYDROCODONE BITARTRATE
     Dosage: UNK
  3. IMBRUVICA [Suspect]
     Active Substance: IBRUTINIB
     Indication: CHRONIC LYMPHOCYTIC LEUKAEMIA
     Route: 048
     Dates: start: 20141007
  4. HYDROXYZINE [Concomitant]
     Active Substance: HYDROXYZINE\HYDROXYZINE HYDROCHLORIDE
  5. TOPROL XL [Concomitant]
     Active Substance: METOPROLOL SUCCINATE
     Dosage: UNK
  6. IMBRUVICA [Suspect]
     Active Substance: IBRUTINIB
     Indication: CHRONIC LYMPHOCYTIC LEUKAEMIA
     Dosage: BID
     Route: 048
     Dates: start: 20141008
  7. HYDROCODONE [Concomitant]
     Active Substance: HYDROCODONE
  8. DETROL [Concomitant]
     Active Substance: TOLTERODINE TARTRATE

REACTIONS (5)
  - Contusion [Unknown]
  - Drug dose omission [Unknown]
  - Inappropriate schedule of drug administration [Unknown]
  - Incorrect dose administered [Not Recovered/Not Resolved]
  - Skin discolouration [Unknown]
